FAERS Safety Report 8287735-8 (Version None)
Quarter: 2012Q2

REPORT INFORMATION
  Report Type: 
  Country: None (occurrence: None)
  Receive Date: 20120416
  Receipt Date: 20120407
  Transmission Date: 20120825
  Serious: Yes (Hospitalization)
  Sender: FDA-Public Use
  Company Number: US-BAYER-2011-036920

PATIENT
  Age: 39 Year
  Sex: Female

DRUGS (21)
  1. LEVOTHYROXINE SODIUM [Concomitant]
     Dosage: 75 MCG/24HR, UNK
     Dates: start: 20080101, end: 20090101
  2. LORTAB [Concomitant]
     Indication: PAIN
     Dosage: UNK UNK, PRN
  3. MELOXICAM [Concomitant]
     Dosage: 7.5 MG, UNK
  4. AMOXICILLIN AND CLAVULANATE POTASSIUM [Concomitant]
     Dosage: 875 UNK, UNK
  5. ALBUTEROL [Concomitant]
  6. TRAZODONE HCL [Concomitant]
     Dosage: 50 MG, UNK
  7. YAZ [Suspect]
     Indication: MENORRHAGIA
     Dosage: UNK
     Dates: start: 20090101
  8. FLEXERIL [Concomitant]
  9. MORPHINE [Concomitant]
     Dosage: 30 MG, UNK
  10. CETIRIZINE HYDROCHLORIDE [Concomitant]
  11. METHYLPREDNISOLONE [Concomitant]
     Dosage: 4 MG, UNK
  12. OXYCODONE HCL AND ACETAMINOPHEN [Concomitant]
     Dosage: 325 MG, UNK
  13. NEURONTIN [Concomitant]
     Dosage: 100 MG, UNK
  14. GABAPENTIN [Concomitant]
     Dosage: 100 MG, UNK
  15. MOBIC [Concomitant]
  16. TOPAMAX [Concomitant]
     Indication: MIGRAINE
     Dosage: UNK
     Dates: start: 20090101
  17. PROTONIX [Concomitant]
     Dosage: 40 MG, UNK
  18. IBUPROFEN [Concomitant]
     Dosage: 800 MG, UNK
  19. FLUCONAZOLE [Concomitant]
     Dosage: 150 MG, UNK
  20. STADOL [Concomitant]
  21. TORADOL [Concomitant]

REACTIONS (3)
  - INJURY [None]
  - PAIN [None]
  - PULMONARY EMBOLISM [None]
